FAERS Safety Report 12015083 (Version 1)
Quarter: 2016Q1

REPORT INFORMATION
  Report Type: Spontaneous
  Country: US (occurrence: US)
  Receive Date: 20160205
  Receipt Date: 20160205
  Transmission Date: 20160526
  Serious: No
  Sender: FDA-Public Use
  Company Number: US-AMGEN-USASP2015017183

PATIENT

DRUGS (9)
  1. TAXOTERE [Concomitant]
     Active Substance: DOCETAXEL
     Dosage: UNK
     Dates: start: 20140617
  2. NEULASTA [Suspect]
     Active Substance: PEGFILGRASTIM
     Indication: PRODUCT USED FOR UNKNOWN INDICATION
     Dosage: UNK
     Route: 065
  3. TAXOTERE [Concomitant]
     Active Substance: DOCETAXEL
     Indication: INVASIVE DUCTAL BREAST CARCINOMA
     Dosage: UNK
     Dates: start: 20140528
  4. CYTOXAN [Concomitant]
     Active Substance: CYCLOPHOSPHAMIDE
     Dosage: UNK
     Dates: start: 20140617
  5. TAXOTERE [Concomitant]
     Active Substance: DOCETAXEL
     Dosage: UNK
     Dates: start: 20140708
  6. CYTOXAN [Concomitant]
     Active Substance: CYCLOPHOSPHAMIDE
     Dosage: UNK
     Dates: start: 20140708
  7. TAXOTERE [Concomitant]
     Active Substance: DOCETAXEL
     Dosage: UNK
     Dates: start: 20140729
  8. CYTOXAN [Concomitant]
     Active Substance: CYCLOPHOSPHAMIDE
     Indication: INVASIVE DUCTAL BREAST CARCINOMA
     Dosage: UNK
     Dates: start: 20140528
  9. CYTOXAN [Concomitant]
     Active Substance: CYCLOPHOSPHAMIDE
     Dosage: UNK
     Dates: start: 20140729

REACTIONS (5)
  - Fatigue [Unknown]
  - Nausea [Unknown]
  - Alopecia [Recovering/Resolving]
  - Pain [Not Recovered/Not Resolved]
  - Pyrexia [Unknown]
